FAERS Safety Report 9566864 (Version 1)
Quarter: 2013Q3

REPORT INFORMATION
  Report Type: Spontaneous
  Country: US (occurrence: US)
  Receive Date: 20130930
  Receipt Date: 20130930
  Transmission Date: 20140515
  Serious: No
  Sender: FDA-Public Use
  Company Number: US-AMGEN-USASP2012060628

PATIENT
  Sex: Female

DRUGS (9)
  1. ENBREL [Suspect]
     Indication: PRODUCT USED FOR UNKNOWN INDICATION
     Dosage: 25 MG, 2 TIMES/WK
     Route: 058
  2. PREDNISONE [Concomitant]
     Dosage: 10 MG, UNK
  3. VALIUM                             /00017001/ [Concomitant]
     Dosage: 2 MG, UNK
  4. FIORINAL                           /00090401/ [Concomitant]
     Dosage: UNK
  5. SPIRIVA [Concomitant]
     Dosage: UNK
  6. FLONASE [Concomitant]
     Dosage: 0.05 %, UNK
  7. ESTRADIOL [Concomitant]
     Dosage: 0.5 MG, UNK
  8. CALCIUM [Concomitant]
     Dosage: 600 MG, UNK
  9. VITAMIN D2 [Concomitant]
     Dosage: 200 UNIT, UNK

REACTIONS (1)
  - Pneumonia [Unknown]
